FAERS Safety Report 8395691-7 (Version None)
Quarter: 2012Q2

REPORT INFORMATION
  Report Type: 
  Country: None (occurrence: None)
  Receive Date: 20120530
  Receipt Date: 20120306
  Transmission Date: 20120825
  Serious: No
  Sender: FDA-Public Use
  Company Number: US-GLAXOSMITHKLINE-A0968825A

PATIENT
  Age: 75 Year
  Sex: Female

DRUGS (5)
  1. VENTOLIN [Suspect]
     Indication: ASTHMA
     Dosage: 2PUFF SIX TIMES PER DAY
     Route: 055
     Dates: start: 20120305, end: 20120305
  2. QVAR 40 [Concomitant]
  3. LITHIUM [Concomitant]
  4. NAVANE [Concomitant]
  5. SYNTHROID [Concomitant]

REACTIONS (7)
  - HEADACHE [None]
  - DYSPHONIA [None]
  - OROPHARYNGEAL PAIN [None]
  - ORAL PAIN [None]
  - NAUSEA [None]
  - MALAISE [None]
  - FATIGUE [None]
